FAERS Safety Report 8072532-9 (Version None)
Quarter: 2012Q1

REPORT INFORMATION
  Report Type: 
  Country: None (occurrence: None)
  Receive Date: 20120126
  Receipt Date: 20120120
  Transmission Date: 20120608
  Serious: Yes (Death)
  Sender: FDA-Public Use
  Company Number: JP-PFIZER INC-2011292632

PATIENT
  Age: 74 Year
  Sex: Male

DRUGS (11)
  1. CERNILTON [Concomitant]
     Dosage: 6 DF, 1X/DAY
     Route: 048
  2. ZOLPIDEM [Concomitant]
     Dosage: 1 TABLET DAILY
     Route: 048
  3. JANUVIA [Concomitant]
     Indication: DIABETES MELLITUS
     Dosage: 1 TABLET DAILY
     Route: 048
  4. VFEND [Suspect]
     Indication: ASPERGILLOSIS
     Dosage: 300 MG, 1X/DAY
     Route: 042
     Dates: start: 20111101, end: 20111114
  5. MUCODYNE [Concomitant]
     Dosage: 3 TABLETS DAILY
     Route: 048
  6. CLARITHROMYCIN [Concomitant]
     Dosage: 2 TABLETS DAILY
     Route: 048
  7. ENTERONON [Concomitant]
     Dosage: 3 G, 1X/DAY
     Route: 048
  8. LANSOPRAZOLE [Concomitant]
     Dosage: 1 TABLET DAILY
     Route: 048
  9. SYMMETREL [Concomitant]
     Dosage: 1 TABLET DAILY
     Route: 048
  10. TAMSULOSIN HCL [Concomitant]
     Dosage: UNK
     Route: 048
  11. ITRACONAZOLE [Concomitant]
     Dosage: 4 TABLETS DAILY
     Route: 048

REACTIONS (2)
  - DEATH [None]
  - VISUAL IMPAIRMENT [None]
